FAERS Safety Report 8988260 (Version 1)
Quarter: 2012Q4

REPORT INFORMATION
  Report Type: 
  Country: JP (occurrence: JP)
  Receive Date: 20121227
  Receipt Date: 20121227
  Transmission Date: 20130627
  Serious: Yes (Other)
  Sender: FDA-Public Use
  Company Number: JP-SANOFI-AVENTIS-2012SA094216

PATIENT
  Age: 30 Year
  Sex: Female

DRUGS (12)
  1. MYSLEE [Suspect]
     Indication: INSOMNIA
     Route: 048
  2. MYSLEE [Suspect]
     Indication: INSOMNIA
     Route: 048
  3. PENTAZOCINE HYDROCHLORIDE [Suspect]
     Indication: ANALGESIC THERAPY
     Route: 048
  4. PENTAZOCINE HYDROCHLORIDE [Suspect]
     Indication: ANALGESIC THERAPY
     Route: 048
  5. PENTAZOCINE HYDROCHLORIDE [Suspect]
     Indication: ANALGESIC THERAPY
     Route: 048
  6. PENTAZOCINE HYDROCHLORIDE [Suspect]
     Indication: ANALGESIC THERAPY
     Route: 048
  7. TRIAZOLAM [Suspect]
     Indication: INSOMNIA
     Route: 048
  8. TRIAZOLAM [Suspect]
     Indication: INSOMNIA
     Route: 048
  9. ESTAZOLAM [Suspect]
     Indication: INSOMNIA
     Route: 048
  10. ESTAZOLAM [Suspect]
     Indication: INSOMNIA
     Route: 048
  11. FLUNITRAZEPAM [Suspect]
     Indication: INSOMNIA
     Route: 048
  12. FLUNITRAZEPAM [Suspect]
     Indication: INSOMNIA
     Route: 048

REACTIONS (4)
  - Drug abuse [Unknown]
  - Feeling drunk [Unknown]
  - Drug dependence [Unknown]
  - Delirium [Recovering/Resolving]
